FAERS Safety Report 9997718 (Version 1)
Quarter: 2014Q1

REPORT INFORMATION
  Report Type: Spontaneous
  Country: US (occurrence: US)
  Receive Date: 20140311
  Receipt Date: 20140311
  Transmission Date: 20141002
  Serious: No
  Sender: FDA-Public Use
  Company Number: US-PFIZER INC-2014066137

PATIENT
  Age: 58 Year
  Sex: Female
  Weight: 56.69 kg

DRUGS (1)
  1. ADVIL [Suspect]
     Indication: PROCEDURAL PAIN
     Dosage: 200MG TWO TIMES A DAY
     Route: 048

REACTIONS (1)
  - Dyspnoea [Not Recovered/Not Resolved]
